FAERS Safety Report 4544537-3 (Version None)
Quarter: 2005Q1

REPORT INFORMATION
  Report Type: 
  Country: None (occurrence: None)
  Receive Date: 20050104
  Receipt Date: 20041230
  Transmission Date: 20050727
  Serious: Yes (Other)
  Sender: FDA-Public Use
  Company Number: 04-12-1813

PATIENT
  Age: 50 Year
  Sex: Female

DRUGS (2)
  1. CLOZAPINE - IVAX PHARMACEUTICALS, INC. ORALS [Suspect]
     Dosage: 500 MG ORAL
     Route: 048
     Dates: start: 20020801
  2. CHEMOTHERAPY [Concomitant]

REACTIONS (2)
  - LUNG NEOPLASM MALIGNANT [None]
  - WHITE BLOOD CELL COUNT DECREASED [None]
